FAERS Safety Report 4889607-5 (Version None)
Quarter: 2006Q1

REPORT INFORMATION
  Report Type: 
  Country: None (occurrence: None)
  Receive Date: 20060120
  Receipt Date: 20060112
  Transmission Date: 20060701
  Serious: Yes (Hospitalization)
  Sender: FDA-Public Use
  Company Number: 2006005715

PATIENT
  Age: 76 Year
  Sex: Female
  Weight: 50 kg

DRUGS (5)
  1. TAHOR (ATORVASTATIN) [Suspect]
     Indication: ILL-DEFINED DISORDER
     Dosage: 10 MG (1 IN 1 D), ORAL
     Route: 048
     Dates: start: 20020615
  2. PREDNISONE [Suspect]
     Indication: RHEUMATOID ARTHRITIS
     Dosage: 40 MG (1 IN 1 D), ORAL
     Route: 048
     Dates: start: 20040615
  3. VALSARTAN [Suspect]
     Indication: ILL-DEFINED DISORDER
     Dosage: 80 MG (1 IN 1 D), ORAL
     Route: 048
     Dates: start: 20020615
  4. INFLIXIMAB (INFLIXIMAB) [Suspect]
     Indication: RHEUMATOID ARTHRITIS
     Dosage: ORAL
     Route: 048
     Dates: start: 20050926, end: 20051108
  5. CALCIUM CARBONATE/COLECALCIFEROL (CALCIUM CARBONATE, COLECALCIFEROL) [Suspect]
     Indication: ILL-DEFINED DISORDER
     Dosage: 2 TABLETS (1 IN 1 D), ORAL
     Route: 048

REACTIONS (9)
  - ANAEMIA [None]
  - AUTOIMMUNE DISORDER [None]
  - DIABETES MELLITUS [None]
  - HERPES VIRUS INFECTION [None]
  - LEUKOCYTOSIS [None]
  - PARALYSIS [None]
  - POLYNEUROPATHY [None]
  - RED BLOOD CELLS CSF POSITIVE [None]
  - THERAPY NON-RESPONDER [None]
